FAERS Safety Report 9866916 (Version 1)
Quarter: 2014Q1

REPORT INFORMATION
  Report Type: Spontaneous
  Country: US (occurrence: None)
  Receive Date: 20140203
  Receipt Date: 20140203
  Transmission Date: 20141002
  Serious: Yes (Life-Threatening, Hospitalization, Disabling)
  Sender: FDA-Public Use
  Company Number: None

PATIENT
  Age: 61 Year
  Sex: Male
  Weight: 113.4 kg

DRUGS (1)
  1. TESTOSTERONE [Suspect]
     Indication: BLOOD TESTOSTERONE DECREASED
     Dosage: 1 ML EVERY TWO WEEKS EVERY TWO WEEK INTO THE MUSCLE
     Dates: start: 20120712, end: 20130909

REACTIONS (2)
  - Myocardial infarction [None]
  - Pulmonary thrombosis [None]
